FAERS Safety Report 7561974-3 (Version None)
Quarter: 2011Q2

REPORT INFORMATION
  Report Type: 
  Country: None (occurrence: None)
  Receive Date: 20110621
  Receipt Date: 20070510
  Transmission Date: 20111010
  Serious: Yes (Other)
  Sender: FDA-Public Use
  Company Number: BE-GENENTECH-320429

PATIENT
  Sex: Female

DRUGS (3)
  1. SYMPATHOMIMETICS [Concomitant]
     Indication: PRODUCT USED FOR UNKNOWN INDICATION
  2. STEROIDS NOS [Concomitant]
     Indication: PRODUCT USED FOR UNKNOWN INDICATION
  3. OMALIZUMAB [Suspect]
     Indication: ASTHMA
     Dosage: UNK
     Route: 058

REACTIONS (1)
  - ASTHMA [None]
